FAERS Safety Report 22850647 (Version 2)
Quarter: 2023Q4

REPORT INFORMATION
  Report Type: Spontaneous
  Country: US (occurrence: US)
  Receive Date: 20230822
  Receipt Date: 20231122
  Transmission Date: 20240110
  Serious: Yes (Other)
  Sender: FDA-Public Use
  Company Number: US-BRISTOL-MYERS SQUIBB COMPANY-2023-117239

PATIENT
  Age: 70 Year
  Sex: Female

DRUGS (1)
  1. ORENCIA [Suspect]
     Active Substance: ABATACEPT
     Indication: Product used for unknown indication
     Dosage: DOSE: INJECT 125 MG(1 SYRINGES) SUBCUTANEOUS ONCE A WEEK. (STORE IN REFRIGERATOR IMMEDIATELY).
     Route: 058

REACTIONS (2)
  - Pneumonia [Unknown]
  - Back pain [Unknown]

NARRATIVE: CASE EVENT DATE: 20230601
